FAERS Safety Report 8381555-1 (Version None)
Quarter: 2012Q2

REPORT INFORMATION
  Report Type: 
  Country: None (occurrence: None)
  Receive Date: 20120523
  Receipt Date: 20120508
  Transmission Date: 20120825
  Serious: Yes (Other)
  Sender: FDA-Public Use
  Company Number: CHPA2012US010773

PATIENT
  Sex: Male
  Weight: 126.98 kg

DRUGS (1)
  1. MICONAZOLE NITRATE [Suspect]
     Indication: PROPHYLAXIS
     Dosage: 1-2 TIMES, QD
     Route: 061
     Dates: start: 20070101

REACTIONS (4)
  - INCORRECT DRUG ADMINISTRATION DURATION [None]
  - NEOPLASM MALIGNANT [None]
  - THERAPEUTIC RESPONSE UNEXPECTED [None]
  - OFF LABEL USE [None]
